FAERS Safety Report 9354352 (Version 1)
Quarter: 2013Q2

REPORT INFORMATION
  Report Type: Spontaneous
  Country: FR (occurrence: None)
  Receive Date: 20130613
  Receipt Date: 20130613
  Transmission Date: 20140414
  Serious: Yes (Hospitalization)
  Sender: FDA-Public Use
  Company Number: 2013000128

PATIENT
  Age: 65 Year
  Sex: Male

DRUGS (7)
  1. ACEON [Suspect]
     Indication: PRODUCT USED FOR UNKNOWN INDICATION
     Route: 048
  2. ADVAGRAF [Suspect]
     Indication: LIVER TRANSPLANT
     Route: 048
     Dates: end: 2005
  3. KARDEGIC [Suspect]
     Route: 048
  4. INEXIUM [Suspect]
     Indication: PRODUCT USED FOR UNKNOWN INDICATION
     Route: 048
  5. CELLCEPT (MYCOPHENOLATE MOFETIL) TABLET [Suspect]
     Indication: LIVER TRANSPLANT
     Route: 048
     Dates: start: 2005
  6. EZETROL [Suspect]
     Route: 048
  7. URSODEOXYCHOLIC ACID [Suspect]
     Indication: CHOLESTASIS
     Dosage: 1 DF
     Route: 048

REACTIONS (3)
  - Enterocolitis haemorrhagic [None]
  - Enterocolitis haemorrhagic [None]
  - Intestinal ulcer [None]
